FAERS Safety Report 9911453 (Version 2)
Quarter: 2014Q1

REPORT INFORMATION
  Report Type: Spontaneous
  Country: US (occurrence: US)
  Receive Date: 20140219
  Receipt Date: 20140305
  Transmission Date: 20141002
  Serious: Yes (Other)
  Sender: FDA-Public Use
  Company Number: PHEH2014US003201

PATIENT
  Sex: Male

DRUGS (2)
  1. STALEVO [Suspect]
     Dosage: UNK UKN, UNK (150 AS REPORTED)
  2. ENTACAPONE-LEVODOPA-CARBIDOPA [Suspect]
     Dosage: UNK UKN, UNK

REACTIONS (3)
  - Tendon rupture [Unknown]
  - Tremor [Unknown]
  - Tremor [None]
